FAERS Safety Report 5573636-2 (Version None)
Quarter: 2007Q4

REPORT INFORMATION
  Report Type: 
  Country: None (occurrence: None)
  Receive Date: 20071226
  Receipt Date: 20071220
  Transmission Date: 20080405
  Serious: Yes (Hospitalization)
  Sender: FDA-Public Use
  Company Number: GB-SANOFI-SYNTHELABO-F01200701731

PATIENT
  Sex: Female
  Weight: 50 kg

DRUGS (6)
  1. DEXAMETHASONE TAB [Concomitant]
     Route: 048
     Dates: start: 20071204, end: 20071207
  2. METOCLOPRAMIDE [Concomitant]
     Route: 048
  3. RANITIDINE HCL [Concomitant]
     Route: 048
  4. CETUXIMAB [Suspect]
     Dosage: 400 MG/M2 LOADING DOSE FOLLOWED BY A WEEKLY INFUSION OF 250 MG/M2
     Route: 041
     Dates: start: 20071205, end: 20071205
  5. CAPECITABINE [Suspect]
     Dosage: 1000 MG/M2 BID DAYS 1-14
     Route: 048
     Dates: start: 20071205, end: 20071205
  6. OXALIPLATIN [Suspect]
     Indication: COLORECTAL CANCER METASTATIC
     Route: 041
     Dates: start: 20071205, end: 20071205

REACTIONS (3)
  - DIPLOPIA [None]
  - DIZZINESS [None]
  - HEMIPARESIS [None]
